FAERS Safety Report 17565011 (Version 1)
Quarter: 2020Q1

REPORT INFORMATION
  Report Type: Spontaneous
  Country: US (occurrence: US)
  Receive Date: 20200319
  Receipt Date: 20200319
  Transmission Date: 20200409
  Serious: Yes (Other)
  Sender: FDA-Public Use
  Company Number: None

PATIENT
  Sex: Female

DRUGS (13)
  1. PREDNISONE. [Concomitant]
     Active Substance: PREDNISONE
  2. BASAGLAR [Concomitant]
     Active Substance: INSULIN GLARGINE
  3. OXYCODONE [Concomitant]
     Active Substance: OXYCODONE
  4. METFORMIN [Concomitant]
     Active Substance: METFORMIN HYDROCHLORIDE
  5. CHOLESTYRAM [Concomitant]
     Active Substance: CHOLESTYRAMINE
  6. METOCLOPRAM [Concomitant]
     Active Substance: METOCLOPRAMIDE
  7. PANTOPRAZOLE [Concomitant]
     Active Substance: PANTOPRAZOLE
  8. PRAVASTATIN. [Concomitant]
     Active Substance: PRAVASTATIN
  9. ENOXAPARIN [Concomitant]
     Active Substance: ENOXAPARIN
  10. METHOTREXATE. [Concomitant]
     Active Substance: METHOTREXATE
  11. ENBREL [Suspect]
     Active Substance: ETANERCEPT
     Indication: RHEUMATOID ARTHRITIS
     Dosage: ?          OTHER FREQUENCY:WEEKLY;??
     Route: 058
     Dates: start: 20180530
  12. DOK [Concomitant]
     Active Substance: DOCUSATE SODIUM
  13. FOLIC ACID. [Concomitant]
     Active Substance: FOLIC ACID

REACTIONS (1)
  - Gastric cancer [None]
